FAERS Safety Report 12051215 (Version 6)
Quarter: 2016Q2

REPORT INFORMATION
  Report Type: Report from Study
  Country: DE (occurrence: DE)
  Receive Date: 20160209
  Receipt Date: 20160420
  Transmission Date: 20160815
  Serious: Yes (Death, Hospitalization, Other)
  Sender: FDA-Public Use
  Company Number: PHHY2016DE000577

PATIENT
  Age: 68 Year
  Sex: Female

DRUGS (2)
  1. SANDOSTATIN LAR DEPOT [Suspect]
     Active Substance: OCTREOTIDE ACETATE
     Dosage: 30 MG, QMO (EVERY 28 DAYS)
     Route: 030
     Dates: start: 20151007
  2. SANDOSTATIN LAR DEPOT [Suspect]
     Active Substance: OCTREOTIDE ACETATE
     Indication: NEUROENDOCRINE TUMOUR
     Dosage: 10 MG, QMO (EVERY 28 DAYS)
     Route: 030
     Dates: start: 20150810, end: 20151006

REACTIONS (8)
  - Neoplasm [Unknown]
  - Proctalgia [Unknown]
  - Death [Fatal]
  - Hepatic neoplasm [Unknown]
  - Myocardial infarction [Recovered/Resolved]
  - Oedema [Unknown]
  - Chest pain [Recovered/Resolved]
  - Heart valve incompetence [Unknown]

NARRATIVE: CASE EVENT DATE: 20160104
